FAERS Safety Report 25221129 (Version 1)
Quarter: 2025Q2

REPORT INFORMATION
  Report Type: Spontaneous
  Country: US (occurrence: US)
  Receive Date: 20250421
  Receipt Date: 20250421
  Transmission Date: 20250717
  Serious: No
  Sender: MERCK SHARP & DOHME LLC
  Company Number: US-009507513-2277822

PATIENT
  Age: 0 Year
  Sex: Male

DRUGS (1)
  1. PROQUAD [Suspect]
     Active Substance: MEASLES VIRUS STRAIN ENDERS^ ATTENUATED EDMONSTON LIVE ANTIGEN\MUMPS VIRUS STRAIN B LEVEL JERYL LYNN
     Indication: Prophylaxis
     Dates: start: 20250210

REACTIONS (2)
  - Product administered to patient of inappropriate age [Unknown]
  - No adverse event [Unknown]

NARRATIVE: CASE EVENT DATE: 20250210
